FAERS Safety Report 5307955-1 (Version None)
Quarter: 2007Q2

REPORT INFORMATION
  Report Type: 
  Country: None (occurrence: None)
  Receive Date: 20070426
  Receipt Date: 20070413
  Transmission Date: 20071010
  Serious: Yes (Hospitalization)
  Sender: FDA-Public Use
  Company Number: 2007AP00678

PATIENT
  Age: 26100 Day
  Sex: Male

DRUGS (11)
  1. CRESTOR [Suspect]
     Indication: HYPERCHOLESTEROLAEMIA
     Route: 048
     Dates: start: 20061227, end: 20070122
  2. JUZEN-TAIHO-TO [Interacting]
     Indication: CEREBRAL INFARCTION
     Route: 048
     Dates: start: 20070109, end: 20070123
  3. MAGMITT [Concomitant]
     Indication: CONSTIPATION
     Route: 048
     Dates: start: 20061211
  4. ADALAT [Concomitant]
     Indication: HYPERTENSION
     Route: 048
     Dates: start: 20061213, end: 20070109
  5. CONVERSYL [Concomitant]
     Indication: HYPERTENSION
     Route: 048
     Dates: start: 20061213
  6. PAXIL [Concomitant]
     Indication: DEPRESSION
     Route: 048
     Dates: start: 20061220, end: 20061225
  7. PAXIL [Concomitant]
     Route: 048
     Dates: start: 20061226
  8. PURSENNID [Concomitant]
     Indication: CONSTIPATION
     Route: 048
     Dates: start: 20061228
  9. CORINAEL L [Concomitant]
     Indication: HYPERTENSION
     Route: 048
     Dates: end: 20061212
  10. RENIVEZE [Concomitant]
     Indication: HYPERTENSION
     Route: 048
     Dates: end: 20061212
  11. PLETAL [Concomitant]
     Indication: CEREBRAL INFARCTION
     Route: 048

REACTIONS (2)
  - DRUG INTERACTION [None]
  - HEPATIC FUNCTION ABNORMAL [None]
